FAERS Safety Report 9526385 (Version 1)
Quarter: 2013Q3

REPORT INFORMATION
  Report Type: Spontaneous
  Country: US (occurrence: US)
  Receive Date: 20130916
  Receipt Date: 20130916
  Transmission Date: 20140515
  Serious: Yes (Other)
  Sender: FDA-Public Use
  Company Number: US-ELI_LILLY_AND_COMPANY-US201309002487

PATIENT
  Sex: Female

DRUGS (3)
  1. HUMALOG 25% LISPRO, 75% NPL [Suspect]
     Indication: DIABETES MELLITUS
     Dosage: UNK, TID
  2. HUMALOG 25% LISPRO, 75% NPL [Suspect]
     Dosage: 50 U, BID
  3. POTASSIUM [Concomitant]

REACTIONS (5)
  - Cardiac failure congestive [Not Recovered/Not Resolved]
  - Coronary artery occlusion [Unknown]
  - Angiopathy [Unknown]
  - Heart valve incompetence [Unknown]
  - Feeling abnormal [Unknown]
